FAERS Safety Report 5141724-0 (Version None)
Quarter: 2006Q4

REPORT INFORMATION
  Report Type: 
  Country: None (occurrence: None)
  Receive Date: 20061026
  Receipt Date: 20061019
  Transmission Date: 20070319
  Serious: Yes (Death, Hospitalization)
  Sender: FDA-Public Use
  Company Number: 227149

PATIENT
  Age: 26 Year
  Sex: Female
  Weight: 109 kg

DRUGS (7)
  1. EFALIZUMAB (EFALIZUMAB) PWDR + SOLVENT, INJECTION SOLN, 125MG [Suspect]
     Indication: PSORIASIS
     Dosage: 1.1 ML, 1/WEEK, SUBCUTANEOUS
     Route: 058
     Dates: start: 20050622, end: 20060526
  2. EFALIZUMAB (EFALIZUMAB) PWDR + SOLVENT, INJECTION SOLN, 125MG [Suspect]
     Indication: PSORIASIS
     Dosage: 1.1 ML, 1/WEEK, SUBCUTANEOUS
     Route: 058
     Dates: start: 20060616
  3. CLOBEX [Concomitant]
  4. COUMADIN [Concomitant]
  5. PROTOPIC OINTMENT (TACROLIMUS) [Concomitant]
  6. WELLBUTRIN [Concomitant]
  7. TOPICAL STEROIDS (TOPICAL STEROIDS NOS) [Concomitant]

REACTIONS (59)
  - AGGRESSION [None]
  - AREFLEXIA [None]
  - ARTHRALGIA [None]
  - ASPARTATE AMINOTRANSFERASE INCREASED [None]
  - ASTHENIA [None]
  - BACK PAIN [None]
  - BLOOD ALKALINE PHOSPHATASE INCREASED [None]
  - BLOOD BILIRUBIN INCREASED [None]
  - BLOOD CHLORIDE INCREASED [None]
  - BLOOD GLUCOSE INCREASED [None]
  - BLOOD PH INCREASED [None]
  - BLOOD POTASSIUM DECREASED [None]
  - BLOOD PRESSURE INCREASED [None]
  - BOWEL SOUNDS ABNORMAL [None]
  - BRAIN DEATH [None]
  - BRAIN OEDEMA [None]
  - CARDIAC INFECTION [None]
  - CENTRAL NERVOUS SYSTEM NECROSIS [None]
  - COMA [None]
  - CORNEAL LIGHT REFLEX TEST ABNORMAL [None]
  - DEPRESSED LEVEL OF CONSCIOUSNESS [None]
  - ENCEPHALITIS VIRAL [None]
  - HEADACHE [None]
  - HEPATIC STEATOSIS [None]
  - HEPATITIS [None]
  - HYPOTENSION [None]
  - HYPOVENTILATION [None]
  - IRRITABILITY [None]
  - LYMPHADENOPATHY [None]
  - LYMPHOCYTOSIS [None]
  - LYMPHOID TISSUE HYPERPLASIA [None]
  - MALAISE [None]
  - MENINGEAL DISORDER [None]
  - MENINGITIS VIRAL [None]
  - MUSCULOSKELETAL DISCOMFORT [None]
  - MYOCARDITIS [None]
  - NAUSEA [None]
  - OEDEMA [None]
  - OEDEMA PERIPHERAL [None]
  - OPIATES POSITIVE [None]
  - PAIN IN JAW [None]
  - PARALYSIS FLACCID [None]
  - PCO2 DECREASED [None]
  - PLASMACYTOSIS [None]
  - PO2 DECREASED [None]
  - PO2 INCREASED [None]
  - PRODUCTIVE COUGH [None]
  - PULMONARY CONGESTION [None]
  - PULMONARY OEDEMA [None]
  - PUPIL FIXED [None]
  - RENAL DISORDER [None]
  - RESPIRATORY FAILURE [None]
  - RESPIRATORY RATE DECREASED [None]
  - SINUSITIS [None]
  - SPLENIC HAEMORRHAGE [None]
  - SPLENOMEGALY [None]
  - SUBARACHNOID HAEMORRHAGE [None]
  - UNRESPONSIVE TO STIMULI [None]
  - VOMITING [None]
